FAERS Safety Report 4901128-X (Version None)
Quarter: 2006Q1

REPORT INFORMATION
  Report Type: 
  Country: None (occurrence: None)
  Receive Date: 20060201
  Receipt Date: 20060120
  Transmission Date: 20060701
  Serious: Yes (Death)
  Sender: FDA-Public Use
  Company Number: 2006012244

PATIENT
  Age: 78 Year
  Sex: Male
  Weight: 73.5 kg

DRUGS (4)
  1. GENOTROPIN [Suspect]
     Indication: HYPOPITUITARISM
     Dosage: 0.3 MG (1 IN 1 D)
     Dates: start: 20010928, end: 20041008
  2. THYROXINE (LEVOTHYROXINE) [Concomitant]
  3. HYDROCORTISONE [Concomitant]
  4. TESTOSTERONE [Concomitant]

REACTIONS (2)
  - LUNG NEOPLASM MALIGNANT [None]
  - METASTATIC BRONCHIAL CARCINOMA [None]
